FAERS Safety Report 25801921 (Version 1)
Quarter: 2025Q3

REPORT INFORMATION
  Report Type: Spontaneous
  Country: BR (occurrence: BR)
  Receive Date: 20250915
  Receipt Date: 20250915
  Transmission Date: 20251021
  Serious: Yes (Hospitalization, Other)
  Sender: BAYER HEALTHCARE PHARMACEUTICALS INC.
  Company Number: BR-BAYER-2025A118168

PATIENT
  Age: 4 Month
  Sex: Female

DRUGS (3)
  1. GADOBUTROL [Suspect]
     Active Substance: GADOBUTROL
     Indication: Investigation
     Dates: start: 20250819, end: 20250819
  2. GADOBUTROL [Suspect]
     Active Substance: GADOBUTROL
     Indication: Magnetic resonance imaging
  3. EPINEPHRINE [Concomitant]
     Active Substance: EPINEPHRINE
     Indication: Adverse event
     Route: 030
     Dates: start: 20250819, end: 20250819

REACTIONS (6)
  - Circumoral oedema [Recovered/Resolved]
  - Anaphylactic shock [Recovered/Resolved]
  - Periorbital oedema [Recovered/Resolved]
  - Erythema nodosum [Recovered/Resolved]
  - Wheezing [Recovered/Resolved]
  - Oxygen saturation decreased [Recovered/Resolved]

NARRATIVE: CASE EVENT DATE: 20250819
